FAERS Safety Report 9170158 (Version 3)
Quarter: 2013Q2

REPORT INFORMATION
  Report Type: Spontaneous
  Country: BR (occurrence: BR)
  Receive Date: 20130319
  Receipt Date: 20130417
  Transmission Date: 20140414
  Serious: Yes (Other)
  Sender: FDA-Public Use
  Company Number: PHHY2013BR025182

PATIENT
  Age: 42 Year
  Sex: Female

DRUGS (12)
  1. TEGRETOL CR [Suspect]
     Indication: EPILEPSY
     Dosage: 5 DF, DAILY
     Route: 048
  2. TEGRETOL CR [Suspect]
     Dosage: 5 DF, DAILY
     Route: 048
     Dates: end: 201301
  3. TEGRETOL CR [Suspect]
     Dosage: 5 DF, DAILY
     Route: 048
     Dates: start: 201301
  4. TEGRETOL CR [Suspect]
     Dosage: UNK UKN, UNK
  5. TRILEPTAL [Suspect]
     Indication: PETIT MAL EPILEPSY
     Dosage: 3 DF (300 MG), DAILY
     Dates: start: 201301, end: 201301
  6. TRILEPTAL [Suspect]
     Indication: CONVULSION
     Dosage: 3 DF (300 MG), UNK
     Route: 048
     Dates: start: 201301, end: 201301
  7. LAMOTRIGINE [Concomitant]
     Indication: PETIT MAL EPILEPSY
     Dosage: 100 MG, QD
  8. LAMOTRIGINE [Concomitant]
     Indication: CONVULSION
  9. URBANIL [Concomitant]
     Indication: PETIT MAL EPILEPSY
     Dosage: UNK UKN, TID
  10. URBANIL [Concomitant]
     Indication: CONVULSION
     Dosage: 3 DF (20 MG), DAILY
     Route: 048
  11. LAMITOR [Concomitant]
     Indication: PETIT MAL EPILEPSY
     Dosage: 1 DF, DAILY
     Route: 048
  12. LAMITOR [Concomitant]
     Indication: CONVULSION

REACTIONS (3)
  - Petit mal epilepsy [Not Recovered/Not Resolved]
  - Convulsion [Not Recovered/Not Resolved]
  - Sleep disorder [Not Recovered/Not Resolved]
